FAERS Safety Report 6298787-9 (Version None)
Quarter: 2009Q3

REPORT INFORMATION
  Report Type: 
  Country: None (occurrence: None)
  Receive Date: 20090805
  Receipt Date: 20090805
  Transmission Date: 20100115
  Serious: No
  Sender: FDA-Public Use
  Company Number: None

PATIENT
  Sex: Male

DRUGS (1)
  1. SAVELLA [Suspect]
     Indication: FIBROMYALGIA
     Dosage: 12.5 2 X DAY STARTED; 25 MG 2 X DAY
     Dates: start: 20090710, end: 20090716

REACTIONS (3)
  - ANURIA [None]
  - MICTURITION URGENCY [None]
  - URINE FLOW DECREASED [None]
